FAERS Safety Report 7484113-6 (Version None)
Quarter: 2011Q2

REPORT INFORMATION
  Report Type: 
  Country: None (occurrence: None)
  Receive Date: 20110517
  Receipt Date: 20081110
  Transmission Date: 20111010
  Serious: Yes (Death, Other)
  Sender: FDA-Public Use
  Company Number: US-BAYER-200838944NA

PATIENT
  Age: 68 Year
  Sex: Female
  Weight: 107 kg

DRUGS (5)
  1. PREVACID [Concomitant]
     Dosage: 30 MG, QD
     Route: 048
  2. TRASYLOL [Suspect]
     Indication: LEG AMPUTATION
     Dosage: UNK
     Route: 042
     Dates: start: 20030926
  3. HYZAAR [Concomitant]
     Dosage: 50/12.5MG DAILY
     Route: 048
  4. COREG [Suspect]
     Dosage: 12.5 MG, BID
     Route: 048
  5. HUMALOG [Concomitant]
     Dosage: 50UNITS EVERY MORNING, 40 UNITS EVERY EVENING
     Route: 058

REACTIONS (13)
  - MULTI-ORGAN FAILURE [None]
  - RENAL IMPAIRMENT [None]
  - EMOTIONAL DISTRESS [None]
  - UNEVALUABLE EVENT [None]
  - PAIN [None]
  - DEATH [None]
  - FEAR [None]
  - INJURY [None]
  - RENAL FAILURE [None]
  - STRESS [None]
  - ANXIETY [None]
  - ANHEDONIA [None]
  - RENAL INJURY [None]
